FAERS Safety Report 7021513-2 (Version None)
Quarter: 2010Q3

REPORT INFORMATION
  Report Type: 
  Country: None (occurrence: None)
  Receive Date: 20100928
  Receipt Date: 20100914
  Transmission Date: 20110219
  Serious: No
  Sender: FDA-Public Use
  Company Number: SPI201000241

PATIENT
  Sex: Female

DRUGS (1)
  1. AMITIZA [Suspect]
     Dosage: 24 MCG, BID, ORAL
     Route: 048

REACTIONS (2)
  - CHEST DISCOMFORT [None]
  - DYSPNOEA [None]
